FAERS Safety Report 18037647 (Version 1)
Quarter: 2020Q3

REPORT INFORMATION
  Report Type: Spontaneous
  Country: US (occurrence: US)
  Receive Date: 20200717
  Receipt Date: 20200717
  Transmission Date: 20201103
  Serious: No
  Sender: FDA-Public Use
  Company Number: US-SA-2020SA183212

PATIENT

DRUGS (1)
  1. SELSUN BLUE 2?IN?1 [Suspect]
     Active Substance: SELENIUM SULFIDE

REACTIONS (1)
  - Hair colour changes [Unknown]
